FAERS Safety Report 16494967 (Version 1)
Quarter: 2019Q2

REPORT INFORMATION
  Report Type: Report from Study
  Country: US (occurrence: US)
  Receive Date: 20190628
  Receipt Date: 20190628
  Transmission Date: 20190711
  Serious: Yes (Other)
  Sender: FDA-Public Use
  Company Number: US-JNJFOC-20190600013

PATIENT
  Sex: Female
  Weight: 85.81 kg

DRUGS (2)
  1. XARELTO [Suspect]
     Active Substance: RIVAROXABAN
     Indication: THROMBOSIS
     Route: 048
     Dates: start: 20190318, end: 20190524
  2. PROPRANOLOL [Concomitant]
     Active Substance: PROPRANOLOL HYDROCHLORIDE
     Indication: HYPERTENSION
     Route: 065

REACTIONS (4)
  - Fluid retention [Not Recovered/Not Resolved]
  - Product label issue [Unknown]
  - Internal haemorrhage [Unknown]
  - Dry mouth [Unknown]
